FAERS Safety Report 10065480 (Version 3)
Quarter: 2016Q4

REPORT INFORMATION
  Report Type: Spontaneous
  Country: US (occurrence: US)
  Receive Date: 20140408
  Receipt Date: 20161006
  Transmission Date: 20170206
  Serious: Yes (Death, Life-Threatening, Hospitalization, Other)
  Sender: FDA-Public Use
  Company Number: US-009507513-1404USA004116

PATIENT
  Sex: Male
  Weight: 100.2 kg

DRUGS (1)
  1. JANUVIA [Suspect]
     Active Substance: SITAGLIPTIN PHOSPHATE
     Indication: TYPE 2 DIABETES MELLITUS
     Dosage: 100 MG, QD
     Route: 048
     Dates: start: 20100308, end: 20100608

REACTIONS (29)
  - Large intestine polyp [Unknown]
  - Spinal osteoarthritis [Unknown]
  - Benign prostatic hyperplasia [Unknown]
  - Death [Fatal]
  - Macular oedema [Unknown]
  - Polypectomy [Unknown]
  - Hospitalisation [Unknown]
  - Adenocarcinoma pancreas [Unknown]
  - Benign small intestinal neoplasm [Unknown]
  - Cardiac pacemaker insertion [Unknown]
  - Vomiting [Unknown]
  - Hip arthroplasty [Unknown]
  - Depression [Unknown]
  - Haemorrhoids [Unknown]
  - Anaemia [Unknown]
  - Gastrointestinal haemorrhage [Unknown]
  - Type 1 diabetes mellitus [Unknown]
  - Nausea [Unknown]
  - Dehydration [Recovered/Resolved]
  - Anxiety [Unknown]
  - Hypokalaemia [Recovered/Resolved]
  - Metastases to liver [Unknown]
  - Hypotension [Unknown]
  - Tumour necrosis [Unknown]
  - Asthenia [Unknown]
  - Pleural effusion [Unknown]
  - Oedema peripheral [Unknown]
  - Sleep apnoea syndrome [Unknown]
  - Back pain [Not Recovered/Not Resolved]

NARRATIVE: CASE EVENT DATE: 2010
